FAERS Safety Report 6494734-5 (Version None)
Quarter: 2009Q4

REPORT INFORMATION
  Report Type: 
  Country: None (occurrence: None)
  Receive Date: 20091214
  Receipt Date: 20090319
  Transmission Date: 20100525
  Serious: Yes (Other)
  Sender: FDA-Public Use
  Company Number: US-BRISTOL-MYERS SQUIBB COMPANY-14552640

PATIENT
  Age: 19 Year
  Sex: Female
  Weight: 50 kg

DRUGS (1)
  1. ABILIFY [Suspect]
     Indication: BIPOLAR DISORDER
     Dosage: DOSE INCREASED TO 15MG;ALSO TAKEN 5MG AND 10MG TABS
     Dates: end: 20061101

REACTIONS (3)
  - CONVULSION [None]
  - DECREASED ACTIVITY [None]
  - FATIGUE [None]
